FAERS Safety Report 5707794-3 (Version None)
Quarter: 2008Q2

REPORT INFORMATION
  Report Type: 
  Country: None (occurrence: None)
  Receive Date: 20080417
  Receipt Date: 20080415
  Transmission Date: 20081010
  Serious: Yes (Other)
  Sender: FDA-Public Use
  Company Number: US-BRISTOL-MYERS SQUIBB COMPANY-14153027

PATIENT

DRUGS (1)
  1. AVAPRO [Suspect]

REACTIONS (2)
  - DEAFNESS [None]
  - RETINAL DISORDER [None]
